FAERS Safety Report 4578446-0 (Version None)
Quarter: 2005Q1

REPORT INFORMATION
  Report Type: 
  Country: None (occurrence: None)
  Receive Date: 20050211
  Receipt Date: 20050201
  Transmission Date: 20050727
  Serious: Yes (Life-Threatening)
  Sender: FDA-Public Use
  Company Number: FR-ABBOTT-05P-056-0289128-00

PATIENT
  Age: 42 Year
  Sex: Male

DRUGS (13)
  1. DEPAKENE [Suspect]
     Indication: EPILEPSY
     Route: 048
     Dates: start: 20030915, end: 20040415
  2. BACTRIM [Suspect]
     Indication: DRUG USE FOR UNKNOWN INDICATION
     Route: 048
     Dates: start: 20031215, end: 20040409
  3. NELFINAVIR MESILATE [Suspect]
     Indication: HIV TEST POSITIVE
     Route: 048
     Dates: end: 20040409
  4. NELFINAVIR MESILATE [Suspect]
  5. NELFINAVIR MESILATE [Suspect]
  6. NELFINAVIR MESILATE [Suspect]
     Route: 048
  7. LAMIVUDINE AND ZIDOVUDINE [Suspect]
     Indication: HIV TEST POSITIVE
     Route: 048
     Dates: start: 20030615, end: 20040409
  8. LAMIVUDINE AND ZIDOVUDINE [Suspect]
  9. PERINDOPRIL [Suspect]
     Indication: HYPERTENSION
     Route: 048
     Dates: start: 20030615
  10. BACLOFEN [Suspect]
     Indication: DRUG USE FOR UNKNOWN INDICATION
     Route: 048
     Dates: end: 20040409
  11. ACETYLSALICYLATE LYSINE [Concomitant]
     Indication: DRUG USE FOR UNKNOWN INDICATION
     Route: 065
     Dates: start: 20030601
  12. PRAZEPAM [Concomitant]
     Indication: DRUG USE FOR UNKNOWN INDICATION
     Route: 048
     Dates: start: 20040403, end: 20040409
  13. FERROUS FUMARATE [Concomitant]
     Indication: DRUG USE FOR UNKNOWN INDICATION
     Route: 048
     Dates: start: 20040403, end: 20040409

REACTIONS (5)
  - ALANINE AMINOTRANSFERASE INCREASED [None]
  - ASPARTATE AMINOTRANSFERASE INCREASED [None]
  - BLOOD LACTATE DEHYDROGENASE INCREASED [None]
  - BONE MARROW DEPRESSION [None]
  - PROTHROMBIN TIME RATIO DECREASED [None]
